FAERS Safety Report 24358091 (Version 1)
Quarter: 2024Q3

REPORT INFORMATION
  Report Type: Report from Study
  Country: FR (occurrence: FR)
  Receive Date: 20240924
  Receipt Date: 20240924
  Transmission Date: 20241016
  Serious: Yes (Other)
  Sender: NOVARTIS
  Company Number: FR-002147023-NVSC2024FR175266

PATIENT
  Age: 56 Year
  Sex: Male

DRUGS (2)
  1. PLUVICTO [Suspect]
     Active Substance: LUTETIUM LU-177 VIPIVOTIDE TETRAXETAN
     Indication: Metastatic salivary gland cancer
     Dosage: UNK, 6 WEEKS
     Route: 065
     Dates: start: 2022
  2. PLUVICTO [Suspect]
     Active Substance: LUTETIUM LU-177 VIPIVOTIDE TETRAXETAN
     Indication: Malignant neoplasm progression

REACTIONS (3)
  - Lymphopenia [Unknown]
  - Anaemia [Unknown]
  - Dry mouth [Unknown]
